FAERS Safety Report 8777677 (Version 1)
Quarter: 2012Q4

REPORT INFORMATION
  Report Type: 
  Country: DK (occurrence: FR)
  Receive Date: 20120911
  Receipt Date: 20120911
  Transmission Date: 20130627
  Serious: Yes (Hospitalization)
  Sender: FDA-Public Use
  Company Number: FR-FRI-1000038449

PATIENT
  Age: 79 Year
  Sex: Female

DRUGS (4)
  1. ESCITALOPRAM [Suspect]
     Dosage: 5 mg
     Route: 048
     Dates: start: 20120712, end: 20120731
  2. DALACINE [Suspect]
     Indication: STAPHYLOCOCCAL INFECTION
     Dosage: 2700 mg
     Route: 048
     Dates: start: 20120718, end: 20120803
  3. OFLOCET [Concomitant]
     Dosage: 600 mg
     Route: 048
     Dates: start: 20120713
  4. LOVENOX [Concomitant]
     Route: 058
     Dates: start: 20120710

REACTIONS (2)
  - Rash maculo-papular [Recovered/Resolved]
  - Pruritus [Recovered/Resolved]
